FAERS Safety Report 7526219-9 (Version None)
Quarter: 2011Q2

REPORT INFORMATION
  Report Type: 
  Country: None (occurrence: None)
  Receive Date: 20110603
  Receipt Date: 20110603
  Transmission Date: 20111010
  Serious: Yes (Death)
  Sender: FDA-Public Use
  Company Number: None

PATIENT
  Age: 68 Year
  Sex: Female

DRUGS (12)
  1. SENNA-MINT WAF [Concomitant]
  2. REVLIMID [Suspect]
     Indication: MYELODYSPLASTIC SYNDROME
     Dosage: REVLIMID 10MG DAILY X21D/28D ORALLY
     Route: 048
     Dates: start: 20101101, end: 20110101
  3. METOPROLOL [Concomitant]
  4. PROAIR HFA [Concomitant]
  5. DOCUSATE [Concomitant]
  6. KLOR-CON [Concomitant]
  7. ACYCLOVIR [Concomitant]
  8. LACTULOSE [Concomitant]
  9. OXYCODONE HCL AND ACETAMINOPHEN [Concomitant]
  10. ALENDRONATE SODIUM [Concomitant]
  11. FUROSEMIDE [Concomitant]
  12. OMEPRAZOLE [Concomitant]

REACTIONS (1)
  - ACUTE MYELOID LEUKAEMIA [None]
